FAERS Safety Report 8830019 (Version 1)
Quarter: 2012Q4

REPORT INFORMATION
  Report Type: Spontaneous
  Country: JP (occurrence: None)
  Receive Date: 20121004
  Receipt Date: 20121004
  Transmission Date: 20130627
  Serious: Yes (Hospitalization)
  Sender: FDA-Public Use
  Company Number: B0834793A

PATIENT
  Age: 33 Year
  Sex: Male

DRUGS (2)
  1. ABACAVIR SULFATE\LAMIVUDINE [Suspect]
     Indication: HIV INFECTION
  2. LOPINAVIR + RITONAVIR [Suspect]

REACTIONS (10)
  - Progressive multifocal leukoencephalopathy [None]
  - Dysarthria [None]
  - Hemiparesis [None]
  - Dysphagia [None]
  - Facial paresis [None]
  - Aphasia [None]
  - Immune reconstitution inflammatory syndrome [None]
  - No therapeutic response [None]
  - General physical health deterioration [None]
  - Disease progression [None]
